FAERS Safety Report 4404651-X (Version None)
Quarter: 2004Q3

REPORT INFORMATION
  Report Type: 
  Country: None (occurrence: None)
  Receive Date: 20040721
  Receipt Date: 20040721
  Transmission Date: 20050211
  Serious: Yes (Disabling)
  Sender: FDA-Public Use
  Company Number: None

PATIENT
  Age: 36 Year
  Sex: Female
  Weight: 61.2356 kg

DRUGS (2)
  1. ZICAM [Suspect]
     Dates: start: 20031220
  2. ZICAM [Suspect]
     Dates: start: 20031223

REACTIONS (2)
  - ANOSMIA [None]
  - DYSGEUSIA [None]
